FAERS Safety Report 4283436-1 (Version None)
Quarter: 2004Q1

REPORT INFORMATION
  Report Type: 
  Country: None (occurrence: None)
  Receive Date: 20040121
  Receipt Date: 20030822
  Transmission Date: 20041129
  Serious: Yes (Hospitalization)
  Sender: FDA-Public Use
  Company Number: A03200302337

PATIENT
  Sex: Male

DRUGS (9)
  1. PLAVIX [Suspect]
     Indication: ANGIOGRAM
     Dosage: 75 MG QD - ORAL
     Route: 048
     Dates: start: 20020605, end: 20020718
  2. WARFARIN SODIUM [Concomitant]
  3. ACETYLSALICYLIC ACID SRT [Concomitant]
  4. RAMIPRIL [Concomitant]
  5. METOPROLOL TARTRATE [Concomitant]
  6. MULTI-VITAMINS [Concomitant]
  7. SERTRALINE HCL [Concomitant]
  8. OXCARBAZEPINE [Concomitant]
  9. PHENYTOIN SODIUM [Concomitant]

REACTIONS (3)
  - CEREBRAL HAEMORRHAGE [None]
  - EPISTAXIS [None]
  - MOUTH HAEMORRHAGE [None]
